FAERS Safety Report 9830423 (Version 1)
Quarter: 2014Q1

REPORT INFORMATION
  Report Type: Spontaneous
  Country: CH (occurrence: CH)
  Receive Date: 20140120
  Receipt Date: 20140120
  Transmission Date: 20141002
  Serious: Yes (Hospitalization)
  Sender: FDA-Public Use
  Company Number: CH-JNJFOC-20140105271

PATIENT
  Age: 81 Year
  Sex: Female

DRUGS (2)
  1. XARELTO [Suspect]
     Indication: SURGERY
     Route: 048
  2. MARCUMAR [Concomitant]
     Route: 065

REACTIONS (3)
  - Renal infarct [Unknown]
  - Thrombosis [Recovered/Resolved]
  - Treatment noncompliance [Unknown]
